FAERS Safety Report 5286853-6 (Version None)
Quarter: 2007Q2

REPORT INFORMATION
  Report Type: 
  Country: None (occurrence: None)
  Receive Date: 20070404
  Receipt Date: 20070329
  Transmission Date: 20071010
  Serious: Yes (Hospitalization)
  Sender: FDA-Public Use
  Company Number: DE-BOEHRINGER INGELHEIM PHARMACEUTICALS, INC.-2007-DE-01845DE

PATIENT
  Age: 58 Year
  Sex: Male
  Weight: 94 kg

DRUGS (2)
  1. MICARDIS HCT [Suspect]
     Dosage: TELMISARTAN/HCT
     Route: 048
  2. LITHIUM CARBONATE [Suspect]
     Route: 048

REACTIONS (4)
  - FATIGUE [None]
  - MYOCLONUS [None]
  - SPEECH DISORDER [None]
  - VISUAL DISTURBANCE [None]
